FAERS Safety Report 12706392 (Version 1)
Quarter: 2016Q3

REPORT INFORMATION
  Report Type: Spontaneous
  Country: US (occurrence: US)
  Receive Date: 20160901
  Receipt Date: 20160901
  Transmission Date: 20161109
  Serious: Yes (Other)
  Sender: FDA-Public Use
  Company Number: US-TEVA-600567USA

PATIENT

DRUGS (1)
  1. OXALIPLATIN INJECTION 50MG/10 ML AND 100MG/20ML [Suspect]
     Active Substance: OXALIPLATIN
     Dosage: 100 MG/20 ML VIAL
     Route: 065

REACTIONS (1)
  - Anaphylactic reaction [Unknown]
